FAERS Safety Report 6057752-7 (Version None)
Quarter: 2009Q1

REPORT INFORMATION
  Report Type: 
  Country: None (occurrence: None)
  Receive Date: 20090129
  Receipt Date: 20090122
  Transmission Date: 20090719
  Serious: Yes (Other)
  Sender: FDA-Public Use
  Company Number: US-AVENTIS-200910615US

PATIENT
  Sex: Male

DRUGS (2)
  1. LANTUS [Suspect]
     Route: 058
  2. GLIPIZIDE [Concomitant]
     Dosage: DOSE: UNK

REACTIONS (2)
  - BLADDER CANCER [None]
  - BLOOD GLUCOSE FLUCTUATION [None]
